FAERS Safety Report 4446360-7 (Version None)
Quarter: 2004Q3

REPORT INFORMATION
  Report Type: 
  Country: None (occurrence: None)
  Receive Date: 20040802
  Receipt Date: 20040527
  Transmission Date: 20050211
  Serious: No
  Sender: FDA-Public Use
  Company Number: 2004-117178-NL

PATIENT
  Age: 25 Year
  Sex: Female
  Weight: 52.3 kg

DRUGS (3)
  1. NUVARING [Suspect]
     Indication: CONTRACEPTION
     Dosage: DF DAILY VAGINAL
     Route: 067
     Dates: start: 20031001
  2. BIRTH CONTROL PILL [Concomitant]
     Dosage: 1 DF DAILY ORAL
     Route: 048
     Dates: start: 20040501, end: 20040601
  3. ZYRTEC [Concomitant]

REACTIONS (2)
  - METRORRHAGIA [None]
  - VAGINAL CONTRACEPTIVE DEVICE EXPELLED [None]
